FAERS Safety Report 15221283 (Version 3)
Quarter: 2019Q2

REPORT INFORMATION
  Report Type: Report from Study
  Country: JP (occurrence: JP)
  Receive Date: 20180731
  Receipt Date: 20190528
  Transmission Date: 20190711
  Serious: Yes (Life-Threatening, Other)
  Sender: FDA-Public Use
  Company Number: JP-TAIHO ONCOLOGY  INC-JPTT180537

PATIENT
  Age: 47 Year
  Sex: Female
  Weight: 57.8 kg

DRUGS (3)
  1. AVASTIN [Concomitant]
     Active Substance: BEVACIZUMAB
     Indication: RECTAL CANCER
     Route: 041
     Dates: start: 20180606, end: 20180620
  2. LIMAS [Concomitant]
     Active Substance: LITHIUM CARBONATE
     Indication: DEPRESSION
     Route: 048
     Dates: end: 20180628
  3. LONSURF [Suspect]
     Active Substance: TIPIRACIL HYDROCHLORIDE\TRIFLURIDINE
     Indication: RECTAL CANCER
     Dosage: ON DAYS 1-5 AND 8-12 OF EACH 28-DAY CYCLE
     Route: 048
     Dates: start: 20180606, end: 20180617

REACTIONS (4)
  - Diarrhoea [Recovering/Resolving]
  - Acute kidney injury [Recovering/Resolving]
  - Hypokalaemia [Recovering/Resolving]
  - Altered state of consciousness [Recovering/Resolving]

NARRATIVE: CASE EVENT DATE: 20180628
